FAERS Safety Report 9928300 (Version 1)
Quarter: 2014Q1

REPORT INFORMATION
  Report Type: Spontaneous
  Country: US (occurrence: None)
  Receive Date: 20140224
  Receipt Date: 20140224
  Transmission Date: 20141002
  Serious: Yes (Other)
  Sender: FDA-Public Use
  Company Number: 2014P1001336

PATIENT
  Age: 47 Year
  Sex: Male

DRUGS (2)
  1. EPINEPHRINE [Suspect]
     Indication: FOOD ALLERGY
  2. DIPHENHYDRAMINE [Concomitant]

REACTIONS (9)
  - Device misuse [None]
  - Injury [None]
  - Throat irritation [None]
  - Paraesthesia oral [None]
  - Pain in extremity [None]
  - Emotional distress [None]
  - Pallor [None]
  - Capillary nail refill test abnormal [None]
  - Injection site discolouration [None]
